FAERS Safety Report 8896231 (Version 1)
Quarter: 2012Q4

REPORT INFORMATION
  Report Type: Spontaneous
  Country: US (occurrence: None)
  Receive Date: 20121106
  Receipt Date: 20121106
  Transmission Date: 20130627
  Serious: Yes (Other)
  Sender: FDA-Public Use
  Company Number: None

PATIENT
  Age: 76 Year
  Sex: Male
  Weight: 71.22 kg

DRUGS (1)
  1. LISINOPRIL [Suspect]
     Dosage: ONCE DAILY PO
     Route: 048

REACTIONS (1)
  - Adverse reaction [None]
